FAERS Safety Report 7917747-2 (Version None)
Quarter: 2011Q4

REPORT INFORMATION
  Report Type: 
  Country: None (occurrence: None)
  Receive Date: 20111116
  Receipt Date: 20111110
  Transmission Date: 20120403
  Serious: Yes (Death)
  Sender: FDA-Public Use
  Company Number: CA-JNJFOC-20111105304

PATIENT
  Sex: Female
  Weight: 47 kg

DRUGS (15)
  1. GOLIMUMAB [Suspect]
     Route: 058
     Dates: start: 20110623, end: 20110926
  2. FOLIC ACID [Concomitant]
     Route: 048
     Dates: start: 20010901
  3. BENADRYL [Concomitant]
     Route: 048
     Dates: start: 20070606
  4. ACTONEL [Concomitant]
     Route: 048
     Dates: start: 20110413
  5. PREDNISONE [Concomitant]
     Route: 048
     Dates: start: 20080719
  6. HYDROMORPHONE HCL [Concomitant]
     Route: 048
     Dates: start: 20081211
  7. PLACEBO [Suspect]
     Indication: RHEUMATOID ARTHRITIS
     Route: 058
     Dates: start: 20060801, end: 20061219
  8. SENOKOT [Concomitant]
     Route: 048
     Dates: start: 20081211
  9. METAMUCIL-2 [Concomitant]
     Route: 048
     Dates: start: 19800101
  10. TYLENOL ES [Concomitant]
     Dates: start: 20010801
  11. NORVASC [Concomitant]
     Route: 048
     Dates: start: 20090629
  12. GOLIMUMAB [Suspect]
     Indication: RHEUMATOID ARTHRITIS
     Route: 058
     Dates: start: 20080115, end: 20110531
  13. GOLIMUMAB [Suspect]
     Route: 058
     Dates: start: 20070117, end: 20071218
  14. METHOTREXATE [Concomitant]
     Route: 048
     Dates: start: 20010901
  15. COLACE [Concomitant]
     Route: 048
     Dates: start: 20081211

REACTIONS (1)
  - NEOPLASM MALIGNANT [None]
